FAERS Safety Report 16229132 (Version 1)
Quarter: 2019Q2

REPORT INFORMATION
  Report Type: Spontaneous
  Country: DE (occurrence: DE)
  Receive Date: 20190423
  Receipt Date: 20190423
  Transmission Date: 20190711
  Serious: Yes (Hospitalization)
  Sender: FDA-Public Use
  Company Number: DE-PFIZER INC-2019166091

PATIENT
  Age: 54 Year
  Sex: Female

DRUGS (15)
  1. NORTRILEN [Interacting]
     Active Substance: NORTRIPTYLINE
     Dosage: 25 MG, 1X/DAY
     Dates: start: 20170302, end: 20170305
  2. NORTRILEN [Interacting]
     Active Substance: NORTRIPTYLINE
     Dosage: 50 MG, 1X/DAY
     Dates: start: 20170323
  3. VALDOXAN [Concomitant]
     Active Substance: AGOMELATINE
     Dosage: 50 MG, 1X/DAY
  4. NORTRILEN [Interacting]
     Active Substance: NORTRIPTYLINE
     Dosage: 75 MG, 1X/DAY
     Dates: start: 20170310, end: 20170315
  5. NORTRILEN [Interacting]
     Active Substance: NORTRIPTYLINE
     Dosage: 50 MG, 1X/DAY
     Dates: start: 20170306, end: 20170309
  6. LITHIUM APOGEPHA [Concomitant]
     Active Substance: LITHIUM CARBONATE
     Dosage: 225 MG, 1X/DAY
     Dates: start: 20170321
  7. SIMVAHEXAL [Interacting]
     Active Substance: SIMVASTATIN
     Dosage: 20 MG, 1X/DAY
  8. METOBETA [Interacting]
     Active Substance: METOPROLOL TARTRATE
     Dosage: 190 MG, 1X/DAY (SEIT AUFNAHME)
  9. VIGANTOLETTEN [Interacting]
     Active Substance: CHOLECALCIFEROL
     Dosage: 20000 IU, 1X/DAY
  10. MAGNESIUM [Concomitant]
     Active Substance: MAGNESIUM
     Dosage: 150 MG, 1X/DAY
  11. AMLODIPINE BESILATE [Suspect]
     Active Substance: AMLODIPINE BESYLATE
     Dosage: 5 MG, 1X/DAY
  12. VENLAFAXINE HCL [Interacting]
     Active Substance: VENLAFAXINE HYDROCHLORIDE
     Dosage: 75 MG, 1X/DAY
     Dates: start: 20170310
  13. NORTRILEN [Interacting]
     Active Substance: NORTRIPTYLINE
     Dosage: 100 MG, 1X/DAY
     Dates: start: 20170316, end: 20170322
  14. PLAVIX [Interacting]
     Active Substance: CLOPIDOGREL BISULFATE
     Dosage: 75 MG, 1X/DAY (SEIT AUFNAHME)
  15. CALCIUM SANDOZ [CALCIUM CARBONATE;CALCIUM GLUCONATE] [Concomitant]
     Dosage: 500 MG, 1X/DAY

REACTIONS (2)
  - Drug interaction [Recovered/Resolved]
  - Sleep disorder [Recovered/Resolved]

NARRATIVE: CASE EVENT DATE: 20170322
